FAERS Safety Report 6545341-7 (Version None)
Quarter: 2010Q1

REPORT INFORMATION
  Report Type: 
  Country: None (occurrence: None)
  Receive Date: 20100121
  Receipt Date: 20100114
  Transmission Date: 20100710
  Serious: Yes (Death, Hospitalization, Other)
  Sender: FDA-Public Use
  Company Number: US-CVT-100015

PATIENT

DRUGS (7)
  1. RANEXA [Suspect]
     Indication: DRUG USE FOR UNKNOWN INDICATION
     Dosage: 500 MG, QD
     Route: 048
     Dates: start: 20091210
  2. DIGOXIN                            /00017701/ [Concomitant]
  3. IMDUR [Concomitant]
  4. PREDNISONE                         /00044701/ [Concomitant]
  5. ARANESP [Concomitant]
  6. LISINOPRIL                         /00894001/ [Concomitant]
  7. ZOCOR [Concomitant]

REACTIONS (2)
  - HYPOTENSION [None]
  - NO THERAPEUTIC RESPONSE [None]
